FAERS Safety Report 7897429-6 (Version None)
Quarter: 2011Q4

REPORT INFORMATION
  Report Type: 
  Country: None (occurrence: None)
  Receive Date: 20111107
  Receipt Date: 20111024
  Transmission Date: 20120403
  Serious: Yes (Hospitalization)
  Sender: FDA-Public Use
  Company Number: TR-SANOFI-AVENTIS-2011SA070055

PATIENT
  Age: 29 Year
  Sex: Female
  Weight: 80 kg

DRUGS (2)
  1. ENOXAPARIN SODIUM [Suspect]
     Indication: ANTICOAGULANT THERAPY
     Route: 065
  2. ENOXAPARIN SODIUM [Suspect]
     Route: 065

REACTIONS (6)
  - DYSPNOEA [None]
  - MATERNAL EXPOSURE DURING PREGNANCY [None]
  - ASTHENIA [None]
  - EMBOLISM [None]
  - INTRACARDIAC THROMBUS [None]
  - DRUG INEFFECTIVE [None]
